FAERS Safety Report 22020548 (Version 3)
Quarter: 2023Q2

REPORT INFORMATION
  Report Type: Spontaneous
  Country: CO (occurrence: CO)
  Receive Date: 20230222
  Receipt Date: 20230516
  Transmission Date: 20230722
  Serious: Yes (Other)
  Sender: FDA-Public Use
  Company Number: CO-AMRYT PHARMACEUTICALS DAC-AEGR006285

PATIENT

DRUGS (5)
  1. JUXTAPID [Suspect]
     Active Substance: LOMITAPIDE MESYLATE
     Indication: Type IIa hyperlipidaemia
     Dosage: 30 MILLIGRAM, QD
     Route: 048
     Dates: start: 20160223, end: 20221226
  2. JUXTAPID [Suspect]
     Active Substance: LOMITAPIDE MESYLATE
     Indication: Type IIa hyperlipidaemia
     Dosage: 30 MILLIGRAM, EVERY 24 HOURS
     Route: 048
     Dates: start: 20230324
  3. EZETIMIBE [Concomitant]
     Active Substance: EZETIMIBE
     Indication: Type IIa hyperlipidaemia
     Dosage: 10 MILLIGRAM, QD
     Route: 048
     Dates: start: 2015
  4. ROSUVASTATIN [Concomitant]
     Active Substance: ROSUVASTATIN
     Indication: Type IIa hyperlipidaemia
     Dosage: 40 MILLIGRAM, QD HS
     Route: 048
     Dates: start: 2015
  5. OMEGA 3 6 9 [BORAGO OFFICINALIS OIL;LINUM USITATISSIMUM SEED OIL;OENOT [Concomitant]
     Indication: Product used for unknown indication
     Dosage: EVERY 24 HOURS
     Route: 048
     Dates: start: 2015

REACTIONS (2)
  - Nephrolithiasis [Recovering/Resolving]
  - Product availability issue [Recovered/Resolved]

NARRATIVE: CASE EVENT DATE: 20221226
